FAERS Safety Report 4675163-3 (Version None)
Quarter: 2005Q2

REPORT INFORMATION
  Report Type: 
  Country: None (occurrence: None)
  Receive Date: 20050526
  Receipt Date: 20050412
  Transmission Date: 20051028
  Serious: Yes (Other)
  Sender: FDA-Public Use
  Company Number: 2005061434

PATIENT
  Sex: Female

DRUGS (2)
  1. BEXTRA [Suspect]
     Indication: ILL-DEFINED DISORDER
     Dosage: 20 MG (10 MG,  2 IN 1 D), ORAL
     Route: 048
     Dates: end: 20050101
  2. VIOXX [Concomitant]

REACTIONS (4)
  - BLOOD PRESSURE INCREASED [None]
  - CARPAL TUNNEL DECOMPRESSION [None]
  - CHEST PAIN [None]
  - PAIN [None]
